FAERS Safety Report 9473109 (Version 3)
Quarter: 2014Q3

REPORT INFORMATION
  Report Type: Spontaneous
  Country: US (occurrence: US)
  Receive Date: 20130823
  Receipt Date: 20140808
  Transmission Date: 20150326
  Serious: Yes (Other)
  Sender: FDA-Public Use
  Company Number: US-BRISTOL-MYERS SQUIBB COMPANY-17452723

PATIENT
  Age: 66 Year
  Sex: Male
  Weight: 66.66 kg

DRUGS (6)
  1. SPRYCEL (CML) TABS 50 MG [Suspect]
     Active Substance: DASATINIB
     Indication: CHRONIC MYELOID LEUKAEMIA
     Route: 048
     Dates: start: 20120205
  2. ATENOLOL. [Concomitant]
     Active Substance: ATENOLOL
  3. MILK THISTLE [Concomitant]
     Active Substance: MILK THISTLE
  4. AMLODIPINE [Concomitant]
     Active Substance: AMLODIPINE BESYLATE
  5. IODINE [Concomitant]
     Active Substance: IODINE
  6. VITAMIN D [Concomitant]
     Active Substance: CHOLECALCIFEROL

REACTIONS (3)
  - Skin disorder [Unknown]
  - Pleural effusion [Unknown]
  - Pneumonia [Recovered/Resolved]

NARRATIVE: CASE EVENT DATE: 20121220
